FAERS Safety Report 6987736-3 (Version None)
Quarter: 2010Q3

REPORT INFORMATION
  Report Type: 
  Country: None (occurrence: None)
  Receive Date: 20100914
  Receipt Date: 20100907
  Transmission Date: 20110219
  Serious: Yes (Other)
  Sender: FDA-Public Use
  Company Number: TPA2010A04876

PATIENT
  Age: 63 Year
  Sex: Male
  Weight: 74.09 kg

DRUGS (6)
  1. PREVACID [Suspect]
     Dosage: UNK UNKNOWN PER ORAL
     Route: 048
  2. PLAVIX [Suspect]
     Dosage: 75 MG, 1 IN 1 D, PER ORAL
     Route: 048
     Dates: start: 20050401
  3. METOPROLOL SUCCINATE [Concomitant]
  4. IMDUR [Concomitant]
  5. ASPIRIN [Concomitant]
  6. RANOLAZINE (RANOLAZINE) [Concomitant]

REACTIONS (2)
  - CORONARY ARTERY OCCLUSION [None]
  - DRUG INTERACTION [None]
